FAERS Safety Report 24890635 (Version 2)
Quarter: 2025Q4

REPORT INFORMATION
  Report Type: Spontaneous
  Country: US (occurrence: US)
  Receive Date: 20250127
  Receipt Date: 20251009
  Transmission Date: 20260118
  Serious: Yes (Other)
  Sender: SANOFI AVENTIS
  Company Number: US-SA-2025SA023880

PATIENT
  Age: 20 Year
  Sex: Female

DRUGS (2)
  1. DUPIXENT [Suspect]
     Active Substance: DUPILUMAB
     Indication: Eczema
     Dosage: 600 MG, 1X
     Route: 058
     Dates: start: 202410, end: 202410
  2. DUPIXENT [Suspect]
     Active Substance: DUPILUMAB
     Indication: Dermatitis atopic
     Dosage: 300 MG, QOW
     Route: 058
     Dates: start: 20241028, end: 2025

REACTIONS (5)
  - Loss of consciousness [Unknown]
  - Dizziness [Recovered/Resolved]
  - Dermatitis atopic [Unknown]
  - Product dose omission issue [Unknown]
  - Rebound effect [Unknown]

NARRATIVE: CASE EVENT DATE: 20250101
